FAERS Safety Report 23146727 (Version 2)
Quarter: 2024Q1

REPORT INFORMATION
  Report Type: Spontaneous
  Country: FR (occurrence: FR)
  Receive Date: 20231105
  Receipt Date: 20240314
  Transmission Date: 20240410
  Serious: Yes (Other)
  Sender: FDA-Public Use
  Company Number: None

PATIENT
  Age: 19 Year
  Sex: Male

DRUGS (9)
  1. HALDOL [Suspect]
     Active Substance: HALOPERIDOL
     Indication: Mania
     Route: 048
     Dates: start: 20201014, end: 20201020
  2. RISPERDAL [Suspect]
     Active Substance: RISPERIDONE
     Indication: Mania
     Route: 048
     Dates: start: 20201020, end: 20201104
  3. CYAMEMAZINE [Suspect]
     Active Substance: CYAMEMAZINE
     Indication: Mania
     Route: 048
     Dates: start: 20201014, end: 20201016
  4. VALPROIC ACID [Suspect]
     Active Substance: VALPROIC ACID
     Indication: Mania
     Route: 048
     Dates: start: 20201020, end: 20201201
  5. RIVOTRIL [Suspect]
     Active Substance: CLONAZEPAM
     Indication: Agitation
     Route: 048
     Dates: start: 20201020, end: 20201028
  6. VALIUM [Suspect]
     Active Substance: DIAZEPAM
     Indication: Agitation
     Route: 048
     Dates: start: 20201013, end: 20201130
  7. LEVOMEPROMAZINE [Suspect]
     Active Substance: LEVOMEPROMAZINE
     Indication: Agitation
     Route: 048
     Dates: start: 20201019, end: 20201104
  8. LOXAPINE [Suspect]
     Active Substance: LOXAPINE
     Indication: Agitation
     Route: 048
     Dates: start: 20201013, end: 20201022
  9. ZYPREXA [Suspect]
     Active Substance: OLANZAPINE
     Indication: Mania
     Route: 048
     Dates: start: 20201014, end: 20201020

REACTIONS (3)
  - Thrombocytopenia [Not Recovered/Not Resolved]
  - Neutropenia [Not Recovered/Not Resolved]
  - Lymphopenia [Not Recovered/Not Resolved]

NARRATIVE: CASE EVENT DATE: 20201020
